FAERS Safety Report 25254156 (Version 1)
Quarter: 2025Q2

REPORT INFORMATION
  Report Type: Spontaneous
  Country: US (occurrence: US)
  Receive Date: 20250430
  Receipt Date: 20250430
  Transmission Date: 20250717
  Serious: Yes (Other)
  Sender: TAKEDA
  Company Number: US-TAKEDA-2025TUS040353

PATIENT
  Age: 20 Year
  Sex: Female
  Weight: 79.4 kg

DRUGS (25)
  1. ADDERALL XR [Suspect]
     Active Substance: AMPHETAMINE ASPARTATE\AMPHETAMINE SULFATE\DEXTROAMPHETAMINE SACCHARATE\DEXTROAMPHETAMINE SULFATE
     Indication: Narcolepsy
  2. LUMRYZ [Interacting]
     Active Substance: SODIUM OXYBATE
     Indication: Narcolepsy
     Dates: start: 20241114, end: 20241204
  3. LUMRYZ [Interacting]
     Active Substance: SODIUM OXYBATE
     Indication: Cataplexy
     Dosage: 6 GRAM, QD
     Dates: start: 20241205, end: 202412
  4. LUMRYZ [Interacting]
     Active Substance: SODIUM OXYBATE
  5. LUMRYZ [Interacting]
     Active Substance: SODIUM OXYBATE
     Dosage: 7.5 GRAM, QD
     Dates: start: 202501, end: 20250210
  6. LUMRYZ [Interacting]
     Active Substance: SODIUM OXYBATE
     Dosage: 9 GRAM, QD
     Dates: start: 20250211
  7. QUETIAPINE [Suspect]
     Active Substance: QUETIAPINE
     Indication: Product used for unknown indication
  8. QUETIAPINE [Suspect]
     Active Substance: QUETIAPINE
  9. QUETIAPINE [Suspect]
     Active Substance: QUETIAPINE
  10. WEGOVY [Suspect]
     Active Substance: SEMAGLUTIDE
     Indication: Weight increased
  11. LITHIUM [Suspect]
     Active Substance: LITHIUM
     Indication: Nausea
  12. SEROQUEL [Concomitant]
     Active Substance: QUETIAPINE FUMARATE
     Indication: Nausea
  13. ZOFRAN [Concomitant]
     Active Substance: ONDANSETRON HYDROCHLORIDE
     Indication: Nausea
  14. PROPRANOLOL [Concomitant]
     Active Substance: PROPRANOLOL HYDROCHLORIDE
  15. METHYLPHENIDATE [Concomitant]
     Active Substance: METHYLPHENIDATE
  16. MODAFINIL [Concomitant]
     Active Substance: MODAFINIL
  17. WAKIX [Concomitant]
     Active Substance: PITOLISANT HYDROCHLORIDE
  18. LITHIUM CARBONATE [Concomitant]
     Active Substance: LITHIUM CARBONATE
     Dosage: 450 MILLIGRAM, QD
  19. VALTREX [Concomitant]
     Active Substance: VALACYCLOVIR HYDROCHLORIDE
     Dosage: 500 MILLIGRAM, QD
  20. PROMETHAZINE [Concomitant]
     Active Substance: PROMETHAZINE HYDROCHLORIDE
     Indication: Nausea
     Dosage: 25 MILLIGRAM, BID
  21. PROMETHAZINE [Concomitant]
     Active Substance: PROMETHAZINE HYDROCHLORIDE
     Indication: Muscle spasms
  22. HYOSCYAMINE [Concomitant]
     Active Substance: HYOSCYAMINE
     Indication: Muscle spasms
  23. HYOSCYAMINE [Concomitant]
     Active Substance: HYOSCYAMINE
     Indication: Nausea
  24. LILETTA [Concomitant]
     Active Substance: LEVONORGESTREL
  25. CLONAZEPAM [Concomitant]
     Active Substance: CLONAZEPAM
     Indication: Nausea

REACTIONS (26)
  - Loss of consciousness [Recovering/Resolving]
  - Hypophagia [Not Recovered/Not Resolved]
  - Sleep deficit [Recovering/Resolving]
  - Blood potassium decreased [Not Recovered/Not Resolved]
  - Blood calcium increased [Not Recovered/Not Resolved]
  - Hot flush [Not Recovered/Not Resolved]
  - Night sweats [Not Recovered/Not Resolved]
  - Drug interaction [Unknown]
  - Muscle spasms [Not Recovered/Not Resolved]
  - Enuresis [Recovered/Resolved]
  - Initial insomnia [Not Recovered/Not Resolved]
  - Middle insomnia [Not Recovered/Not Resolved]
  - Vertigo [Unknown]
  - Feeling abnormal [Unknown]
  - Thirst [Unknown]
  - Insomnia [Not Recovered/Not Resolved]
  - Fatigue [Unknown]
  - Restlessness [Not Recovered/Not Resolved]
  - Vomiting [Recovered/Resolved]
  - Somnolence [Unknown]
  - Nausea [Recovering/Resolving]
  - Dizziness [Unknown]
  - Weight decreased [Not Recovered/Not Resolved]
  - Product dose omission issue [Unknown]
  - Wrong technique in product usage process [Unknown]
  - Drug ineffective [Unknown]

NARRATIVE: CASE EVENT DATE: 20240101
